FAERS Safety Report 5553008-7 (Version None)
Quarter: 2007Q4

REPORT INFORMATION
  Report Type: 
  Country: None (occurrence: None)
  Receive Date: 20071207
  Receipt Date: 20071126
  Transmission Date: 20080405
  Serious: Yes (Other)
  Sender: FDA-Public Use
  Company Number: CHPA2007US12750

PATIENT
  Sex: Female

DRUGS (1)
  1. NICOTINE [Suspect]
     Indication: SMOKING CESSATION THERAPY
     Dosage: 14 MG, QD, TRANSDERMAL
     Route: 062
     Dates: start: 20071101

REACTIONS (5)
  - BODY TEMPERATURE DECREASED [None]
  - DRUG TOXICITY [None]
  - DYSPNOEA [None]
  - HEART RATE IRREGULAR [None]
  - TREATMENT NONCOMPLIANCE [None]
